FAERS Safety Report 7493787-5 (Version None)
Quarter: 2011Q2

REPORT INFORMATION
  Report Type: 
  Country: None (occurrence: None)
  Receive Date: 20110520
  Receipt Date: 20110308
  Transmission Date: 20111010
  Serious: No
  Sender: FDA-Public Use
  Company Number: US-ASTRAZENECA-2010SE60946

PATIENT
  Age: 58 Year
  Sex: Female

DRUGS (3)
  1. VIMOVO [Suspect]
     Route: 048
  2. NEXIUM [Concomitant]
     Route: 048
  3. SYMBICORT [Concomitant]
     Route: 055

REACTIONS (2)
  - ADVERSE DRUG REACTION [None]
  - DRUG INEFFECTIVE [None]
